FAERS Safety Report 8071895-8 (Version None)
Quarter: 2012Q1

REPORT INFORMATION
  Report Type: 
  Country: None (occurrence: None)
  Receive Date: 20120126
  Receipt Date: 20120123
  Transmission Date: 20120608
  Serious: No
  Sender: FDA-Public Use
  Company Number: US-BIOGENIDEC-2012BI002863

PATIENT
  Age: 40 Year
  Sex: Male

DRUGS (1)
  1. AVONEX [Suspect]
     Indication: MULTIPLE SCLEROSIS
     Route: 030
     Dates: start: 20120122

REACTIONS (6)
  - CHILLS [None]
  - CHEST PAIN [None]
  - PAIN IN EXTREMITY [None]
  - BACK PAIN [None]
  - HYPERHIDROSIS [None]
  - CHEST DISCOMFORT [None]
